FAERS Safety Report 19761528 (Version 1)
Quarter: 2021Q3

REPORT INFORMATION
  Report Type: Spontaneous
  Country: US (occurrence: US)
  Receive Date: 20210830
  Receipt Date: 20210830
  Transmission Date: 20211014
  Serious: Yes (Other)
  Sender: FDA-Public Use
  Company Number: US-BIOVITRUM-2021US6595

PATIENT
  Sex: Male

DRUGS (2)
  1. KINERET [Suspect]
     Active Substance: ANAKINRA
     Indication: RHEUMATOID ARTHRITIS
     Dosage: DOSAGE FORM/ STRENGTH: 100MG/0.67ML
     Route: 058
     Dates: start: 20210612
  2. KINERET [Suspect]
     Active Substance: ANAKINRA
     Route: 058
     Dates: start: 202106

REACTIONS (5)
  - Syringe issue [Unknown]
  - Injection site pruritus [Unknown]
  - Injection site rash [Unknown]
  - Injection site erythema [Unknown]
  - Diabetes mellitus [Unknown]
